FAERS Safety Report 4452932-6 (Version None)
Quarter: 2004Q3

REPORT INFORMATION
  Report Type: 
  Country: None (occurrence: None)
  Receive Date: 20040916
  Receipt Date: 20040901
  Transmission Date: 20050211
  Serious: Yes (Hospitalization)
  Sender: FDA-Public Use
  Company Number: 2004-BP-07563RO

PATIENT
  Age: 48 Year
  Sex: Male

DRUGS (7)
  1. DEXAMETHASONE [Suspect]
     Indication: MULTIPLE MYELOMA
     Dosage: CYCLIC: 40 MG/D X 4 D/CYCLE, PO
     Route: 048
     Dates: start: 20030131, end: 20030203
  2. GENASENSE [Suspect]
     Indication: MULTIPLE MYELOMA
     Dosage: 7 MG/KG/DAY X 7 D/CYCLE, IV
     Route: 042
     Dates: start: 20030128, end: 20030203
  3. FAMOTIDINE [Concomitant]
  4. SENNA (SENNA) [Concomitant]
  5. LAXATIVES (LAXATIVES) [Concomitant]
  6. MORPHINE SULFATE [Concomitant]
  7. TRIMETHOPRIM/SILFAMETHOXAZOLE (BACTRIM) [Concomitant]

REACTIONS (6)
  - ATELECTASIS [None]
  - CHEST PAIN [None]
  - CHOLELITHIASIS [None]
  - DYSPNOEA [None]
  - OEDEMA PERIPHERAL [None]
  - RENAL FAILURE ACUTE [None]
